FAERS Safety Report 14710878 (Version 1)
Quarter: 2018Q2

REPORT INFORMATION
  Report Type: Spontaneous
  Country: AR (occurrence: AR)
  Receive Date: 20180403
  Receipt Date: 20180403
  Transmission Date: 20180711
  Serious: Yes (Hospitalization)
  Sender: FDA-Public Use
  Company Number: AR-MYLANLABS-2018M1020971

PATIENT
  Age: 17 Year
  Sex: Female

DRUGS (6)
  1. SERTRALINE [Suspect]
     Active Substance: SERTRALINE HYDROCHLORIDE
     Route: 065
  2. ISONIAZID. [Interacting]
     Active Substance: ISONIAZID
     Indication: PROPHYLAXIS
     Dosage: DAY 40 OF HER HOSPITALISATION
     Route: 065
  3. QUETIAPINE. [Concomitant]
     Active Substance: QUETIAPINE
     Route: 065
  4. SERTRALINE [Suspect]
     Active Substance: SERTRALINE HYDROCHLORIDE
     Indication: MAJOR DEPRESSION
     Route: 065
  5. QUETIAPINE. [Concomitant]
     Active Substance: QUETIAPINE
     Indication: PRODUCT USED FOR UNKNOWN INDICATION
     Route: 065
  6. CLONAZEPAM. [Concomitant]
     Active Substance: CLONAZEPAM
     Indication: PRODUCT USED FOR UNKNOWN INDICATION
     Dosage: 1 MG, QD
     Route: 065

REACTIONS (4)
  - Generalised tonic-clonic seizure [Recovered/Resolved]
  - Status epilepticus [Recovered/Resolved]
  - Serotonin syndrome [Recovered/Resolved]
  - Drug interaction [Recovered/Resolved]
